FAERS Safety Report 25026455 (Version 1)
Quarter: 2025Q1

REPORT INFORMATION
  Report Type: Spontaneous
  Country: NL (occurrence: NL)
  Receive Date: 20250301
  Receipt Date: 20250301
  Transmission Date: 20250409
  Serious: Yes (Other)
  Sender: AUROBINDO
  Company Number: NL-BIOVITRUM-2025-NL-001976

PATIENT
  Age: 19 Year
  Sex: Female

DRUGS (14)
  1. PREDNISONE [Suspect]
     Active Substance: PREDNISONE
     Indication: Still^s disease
     Route: 065
     Dates: start: 2023, end: 202402
  2. PREDNISONE [Suspect]
     Active Substance: PREDNISONE
     Route: 065
     Dates: start: 202410
  3. PREDNISONE [Suspect]
     Active Substance: PREDNISONE
     Route: 065
     Dates: start: 202412
  4. PREDNISONE [Suspect]
     Active Substance: PREDNISONE
     Route: 065
     Dates: start: 202412
  5. PREDNISONE [Suspect]
     Active Substance: PREDNISONE
     Route: 065
     Dates: start: 202501
  6. PREDNISONE [Suspect]
     Active Substance: PREDNISONE
     Route: 065
     Dates: start: 202502
  7. ANAKINRA [Suspect]
     Active Substance: ANAKINRA
     Indication: Still^s disease
     Route: 065
     Dates: start: 202310, end: 202311
  8. ANAKINRA [Suspect]
     Active Substance: ANAKINRA
     Route: 065
     Dates: start: 202411, end: 202412
  9. METHYLPREDNISOLONE [Suspect]
     Active Substance: METHYLPREDNISOLONE
     Indication: Still^s disease
     Route: 065
     Dates: start: 2023
  10. METHYLPREDNISOLONE [Suspect]
     Active Substance: METHYLPREDNISOLONE
     Route: 065
     Dates: start: 202310
  11. TOFACITINIB [Suspect]
     Active Substance: TOFACITINIB
     Indication: Still^s disease
     Route: 065
     Dates: start: 202310
  12. TOFACITINIB [Suspect]
     Active Substance: TOFACITINIB
     Route: 065
     Dates: start: 202409
  13. CANAKINUMAB [Suspect]
     Active Substance: CANAKINUMAB
     Indication: Still^s disease
     Route: 065
     Dates: start: 202310, end: 202411
  14. TOCILIZUMAB [Suspect]
     Active Substance: TOCILIZUMAB
     Indication: Still^s disease
     Route: 065
     Dates: start: 202412

REACTIONS (6)
  - Still^s disease [Unknown]
  - Haemophagocytic lymphohistiocytosis [Unknown]
  - Interstitial lung disease [Unknown]
  - Cutaneous vasculitis [Unknown]
  - Condition aggravated [Unknown]
  - Drug ineffective [Unknown]
